FAERS Safety Report 17175815 (Version 2)
Quarter: 2019Q4

REPORT INFORMATION
  Report Type: Spontaneous
  Country: BE (occurrence: BE)
  Receive Date: 20191219
  Receipt Date: 20191226
  Transmission Date: 20200122
  Serious: Yes (Other)
  Sender: FDA-Public Use
  Company Number: BE-MYLANLABS-2019M1124982

PATIENT
  Age: 74 Year
  Sex: Female

DRUGS (1)
  1. ALENDRONATE [Suspect]
     Active Substance: ALENDRONATE SODIUM
     Indication: OSTEOPOROSIS
     Dosage: 1UNK, QD
     Route: 048
     Dates: start: 2004

REACTIONS (5)
  - Forearm fracture [Recovering/Resolving]
  - Femur fracture [Recovering/Resolving]
  - Balance disorder [Unknown]
  - Fall [Unknown]
  - Atypical femur fracture [Recovered/Resolved]

NARRATIVE: CASE EVENT DATE: 2009
